FAERS Safety Report 11473574 (Version 1)
Quarter: 2015Q3

REPORT INFORMATION
  Report Type: Spontaneous
  Country: US (occurrence: None)
  Receive Date: 20150908
  Receipt Date: 20150908
  Transmission Date: 20151125
  Serious: Yes (Hospitalization)
  Sender: FDA-Public Use
  Company Number: None

PATIENT
  Age: 89 Year
  Sex: Male
  Weight: 79.4 kg

DRUGS (1)
  1. MELOXICAM. [Suspect]
     Active Substance: MELOXICAM
     Indication: PAIN
     Route: 048
     Dates: start: 20150112, end: 20150829

REACTIONS (6)
  - Gastric ulcer [None]
  - Fall [None]
  - Anaemia [None]
  - Gastric haemorrhage [None]
  - Musculoskeletal disorder [None]
  - Duodenal ulcer [None]

NARRATIVE: CASE EVENT DATE: 20150827
